FAERS Safety Report 12742714 (Version 1)
Quarter: 2016Q3

REPORT INFORMATION
  Report Type: Spontaneous
  Country: IT (occurrence: IT)
  Receive Date: 20160914
  Receipt Date: 20160914
  Transmission Date: 20161109
  Serious: Yes (Hospitalization)
  Sender: FDA-Public Use
  Company Number: IT-JNJFOC-20160908789

PATIENT
  Age: 78 Year
  Sex: Female

DRUGS (6)
  1. WARFARIN [Interacting]
     Active Substance: WARFARIN
     Indication: ATRIAL FIBRILLATION
     Route: 065
  2. RIVAROXABAN [Suspect]
     Active Substance: RIVAROXABAN
     Indication: ATRIAL FIBRILLATION
     Route: 048
  3. ASPIRIN. [Concomitant]
     Active Substance: ASPIRIN
     Route: 065
  4. LOSARTAN. [Concomitant]
     Active Substance: LOSARTAN
     Route: 065
  5. HYDROCHLOROTHIAZIDE. [Concomitant]
     Active Substance: HYDROCHLOROTHIAZIDE
     Route: 065
  6. NEBIVOLOL. [Concomitant]
     Active Substance: NEBIVOLOL
     Route: 065

REACTIONS (6)
  - Shock haemorrhagic [Not Recovered/Not Resolved]
  - Acute kidney injury [Unknown]
  - Haemorrhage subcutaneous [Not Recovered/Not Resolved]
  - Ecchymosis [Unknown]
  - Drug interaction [Unknown]
  - Contraindicated product administered [Unknown]
